FAERS Safety Report 4439553-6 (Version None)
Quarter: 2004Q3

REPORT INFORMATION
  Report Type: 
  Country: None (occurrence: None)
  Receive Date: 20040830
  Receipt Date: 20040816
  Transmission Date: 20050211
  Serious: Yes (Hospitalization)
  Sender: FDA-Public Use
  Company Number: A02200402504

PATIENT
  Age: 84 Year
  Sex: Female

DRUGS (3)
  1. STILNOX (ZOLPIDEM) TABLET 10MG [Suspect]
     Dosage: 5 MG OD
     Route: 048
     Dates: end: 20040705
  2. NAFTILUX (NAFTIDROFURYL OXALATE CAPSULE PR - 200 MG [Suspect]
     Dosage: 400 MG OD
     Route: 048
     Dates: end: 20040706
  3. OCADRIK (VERAPAMIL TRANDOLAPRIL) CAPSULE PR 182 MG [Suspect]
     Dosage: 182 MG OD
     Route: 048
     Dates: start: 20030615, end: 20040707

REACTIONS (6)
  - ANOREXIA [None]
  - BLOOD OSMOLARITY DECREASED [None]
  - CREATININE RENAL CLEARANCE DECREASED [None]
  - GENERAL PHYSICAL HEALTH DETERIORATION [None]
  - HYPONATRAEMIA [None]
  - NAUSEA [None]
